FAERS Safety Report 8140042-6 (Version None)
Quarter: 2012Q1

REPORT INFORMATION
  Report Type: 
  Country: None (occurrence: None)
  Receive Date: 20120215
  Receipt Date: 20120209
  Transmission Date: 20120608
  Serious: Yes (Hospitalization, Other)
  Sender: FDA-Public Use
  Company Number: AU-B.I. PHARMACEUTICALS,INC./RIDGEFIELD-2012-AU-00235AU

PATIENT
  Sex: Male
  Weight: 100 kg

DRUGS (5)
  1. CORDALOX [Concomitant]
  2. PRADAXA [Suspect]
     Indication: ATRIAL FIBRILLATION
     Dosage: 220 MG
     Dates: start: 20110701, end: 20111201
  3. WARFARIN SODIUM [Suspect]
  4. AVAPRO [Concomitant]
  5. METHOTREXATE SODIUM [Concomitant]

REACTIONS (6)
  - BLADDER CANCER RECURRENT [None]
  - URINARY TRACT INFECTION [None]
  - HAEMATURIA [None]
  - URETERIC OBSTRUCTION [None]
  - POLLAKIURIA [None]
  - RENAL FAILURE ACUTE [None]
